FAERS Safety Report 5481773-6 (Version None)
Quarter: 2007Q4

REPORT INFORMATION
  Report Type: 
  Country: None (occurrence: None)
  Receive Date: 20071010
  Receipt Date: 20070928
  Transmission Date: 20080405
  Serious: Yes (Death)
  Sender: FDA-Public Use
  Company Number: GB-SANOFI-SYNTHELABO-A01200711018

PATIENT
  Age: 63 Year
  Sex: Male

DRUGS (4)
  1. ZOPICLONE [Concomitant]
     Indication: INSOMNIA
     Dosage: 7.5 MG
     Route: 048
     Dates: start: 20060926, end: 20060929
  2. PAROXETINE [Concomitant]
     Indication: DEPRESSION
     Route: 048
     Dates: start: 20060201
  3. ZOLPIDEM TARTRATE [Suspect]
     Indication: INSOMNIA
     Dosage: 10 MG
     Route: 048
     Dates: start: 20061003
  4. ZOLPIDEM TARTRATE [Suspect]
     Indication: AGITATION
     Dosage: 10 MG
     Route: 048
     Dates: start: 20061003

REACTIONS (1)
  - COMPLETED SUICIDE [None]
